FAERS Safety Report 22626376 (Version 1)
Quarter: 2023Q2

REPORT INFORMATION
  Report Type: Spontaneous
  Country: FR (occurrence: None)
  Receive Date: 20230621
  Receipt Date: 20230621
  Transmission Date: 20230722
  Serious: Yes (Other)
  Sender: FDA-Public Use
  Company Number: 2023A140986

PATIENT

DRUGS (1)
  1. KOSELUGO [Suspect]
     Active Substance: SELUMETINIB
     Indication: Neurofibromatosis
     Dosage: ONE OR TWO DAILY DOSES
     Route: 048

REACTIONS (13)
  - Toxicity to various agents [Unknown]
  - Eczema [Unknown]
  - Dermatitis acneiform [Unknown]
  - Dry skin [Unknown]
  - Alopecia [Unknown]
  - Paronychia [Unknown]
  - Gastrointestinal disorder [Unknown]
  - Muscle spasms [Unknown]
  - Psychomotor hyperactivity [Unknown]
  - Abdominal pain [Unknown]
  - Nausea [Unknown]
  - Vomiting [Unknown]
  - Diarrhoea [Unknown]
